FAERS Safety Report 6736963-9 (Version None)
Quarter: 2010Q2

REPORT INFORMATION
  Report Type: 
  Country: None (occurrence: None)
  Receive Date: 20100523
  Receipt Date: 20100518
  Transmission Date: 20101027
  Serious: Yes (Death)
  Sender: FDA-Public Use
  Company Number: PE-ASTRAZENECA-2010SE22694

PATIENT
  Age: 64 Year
  Sex: Female

DRUGS (2)
  1. SEROQUEL XR [Suspect]
     Indication: BIPOLAR I DISORDER
     Route: 048
  2. LAMOTRIGINE [Concomitant]
     Indication: BIPOLAR I DISORDER
     Route: 048

REACTIONS (1)
  - COMPLETED SUICIDE [None]
